FAERS Safety Report 6506078-3 (Version None)
Quarter: 2009Q4

REPORT INFORMATION
  Report Type: 
  Country: None (occurrence: None)
  Receive Date: 20091217
  Receipt Date: 20091217
  Transmission Date: 20100525
  Serious: Yes (Other)
  Sender: FDA-Public Use
  Company Number: None

PATIENT
  Age: 21 Year
  Sex: Male

DRUGS (1)
  1. DILAUDID [Suspect]
     Indication: ANALGESIC THERAPY
     Dosage: 0.5MG UNKNOWN IV
     Route: 042
     Dates: start: 20091012, end: 20091013

REACTIONS (3)
  - INCORRECT DOSE ADMINISTERED [None]
  - OXYGEN SATURATION DECREASED [None]
  - UNRESPONSIVE TO STIMULI [None]
